FAERS Safety Report 8572930-0 (Version None)
Quarter: 2012Q3

REPORT INFORMATION
  Report Type: 
  Country: None (occurrence: None)
  Receive Date: 20120806
  Receipt Date: 20120731
  Transmission Date: 20120928
  Serious: Yes (Life-Threatening, Hospitalization)
  Sender: FDA-Public Use
  Company Number: DE-ASTRAZENECA-2012SE54450

PATIENT
  Age: 75 Year
  Sex: Male

DRUGS (1)
  1. NAROPIN [Suspect]
     Indication: LOCAL ANAESTHESIA
     Route: 065
     Dates: start: 20120724, end: 20120724

REACTIONS (3)
  - METABOLIC ACIDOSIS [None]
  - CONVULSION [None]
  - BRADYCARDIA [None]
